FAERS Safety Report 9535631 (Version 2)
Quarter: 2013Q4

REPORT INFORMATION
  Report Type: Spontaneous
  Country: US (occurrence: US)
  Receive Date: 20130919
  Receipt Date: 20131115
  Transmission Date: 20140711
  Serious: Yes (Other)
  Sender: FDA-Public Use
  Company Number: US-BIOGENIDEC-2013BI086628

PATIENT
  Age: 65 Year
  Sex: Female

DRUGS (2)
  1. TECFIDERA [Suspect]
     Indication: MULTIPLE SCLEROSIS
     Route: 048
     Dates: start: 201306
  2. DEMEROL [Concomitant]

REACTIONS (5)
  - Respiratory arrest [Unknown]
  - Wrist surgery [Unknown]
  - Nausea [Unknown]
  - Vomiting [Unknown]
  - Underdose [Unknown]
